FAERS Safety Report 5083289-8 (Version None)
Quarter: 2006Q3

REPORT INFORMATION
  Report Type: 
  Country: None (occurrence: None)
  Receive Date: 20060818
  Receipt Date: 20060613
  Transmission Date: 20061208
  Serious: Yes (Hospitalization)
  Sender: FDA-Public Use
  Company Number: US-AMGEN-US182823

PATIENT
  Sex: Female

DRUGS (15)
  1. ENBREL [Suspect]
     Indication: JUVENILE ARTHRITIS
     Route: 058
     Dates: start: 20021101
  2. METHOTREXATE [Suspect]
     Route: 048
     Dates: start: 19910101, end: 20060301
  3. MOBIC [Suspect]
     Dates: start: 20030401, end: 20060301
  4. PREDNISONE [Concomitant]
     Dates: start: 19910101
  5. FOLIC ACID [Concomitant]
     Dates: start: 19910101
  6. DARVOCET [Concomitant]
     Dates: start: 20030401
  7. ACTONEL [Concomitant]
     Dates: start: 20030401
  8. PROTONIX [Concomitant]
     Dates: start: 20011201
  9. CALCIUM GLUCONATE [Concomitant]
     Dates: start: 20030101
  10. VITAMIN D [Concomitant]
     Dates: start: 20030101
  11. XANAX [Concomitant]
  12. ASPIRIN [Concomitant]
  13. LOVENOX [Concomitant]
  14. ACETAMINOPHEN [Concomitant]
  15. LACTULOSE [Concomitant]

REACTIONS (16)
  - CANDIDIASIS [None]
  - CARDIAC NEOPLASM UNSPECIFIED [None]
  - CHEST PAIN [None]
  - DECREASED APPETITE [None]
  - DEHYDRATION [None]
  - DIVERTICULUM [None]
  - HYPOTENSION [None]
  - MOUTH ULCERATION [None]
  - NAUSEA [None]
  - PAIN IN JAW [None]
  - PYREXIA [None]
  - RECTAL HAEMORRHAGE [None]
  - UTERINE LEIOMYOMA [None]
  - VAGINAL HAEMORRHAGE [None]
  - VOMITING [None]
  - WEIGHT DECREASED [None]
